FAERS Safety Report 25716818 (Version 1)
Quarter: 2025Q3

REPORT INFORMATION
  Report Type: Spontaneous
  Country: US (occurrence: None)
  Receive Date: 20250822
  Receipt Date: 20250822
  Transmission Date: 20251021
  Serious: No
  Sender: FDA-CTU
  Company Number: None

PATIENT
  Age: 49 Year
  Sex: Female
  Weight: 58.06 kg

DRUGS (17)
  1. SYNTHROID [Suspect]
     Active Substance: LEVOTHYROXINE SODIUM
     Indication: Post procedural hypothyroidism
     Dosage: FREQUENCY : DAILY;?
  2. LEVOXYL [Suspect]
     Active Substance: LEVOTHYROXINE SODIUM
  3. LEVOTHYROXINE [Suspect]
     Active Substance: LEVOTHYROXINE
  4. TYLENOL [Concomitant]
     Active Substance: ACETAMINOPHEN
  5. Albuterol (Proventil) [Concomitant]
  6. Albuterol 108 [Concomitant]
  7. Azelastine (Astelin) 0.1% Spray [Concomitant]
  8. Benzonatate (Tessalon) 100 mg [Concomitant]
  9. Epinephrine (EPIPeN) [Concomitant]
  10. Ferrous Sulfate 325 [Concomitant]
  11. ALLEGRA [Concomitant]
     Active Substance: FEXOFENADINE HYDROCHLORIDE
  12. PLAQUENIL [Concomitant]
     Active Substance: HYDROXYCHLOROQUINE SULFATE
  13. OMEGA-3 FATTY ACIDS [Concomitant]
     Active Substance: OMEGA-3 FATTY ACIDS
  14. Ondansetron (Zofran-ODT) [Concomitant]
  15. TIROSINT 50 MCG CAPS [Concomitant]
  16. VALACYCLOVIR (Valtrex) 1000 mg [Concomitant]
  17. Vitamin D3 (Cholecalciferol) 50 mcg [Concomitant]

REACTIONS (3)
  - Abdominal pain [None]
  - Constipation [None]
  - Headache [None]

NARRATIVE: CASE EVENT DATE: 20241127
